FAERS Safety Report 20707830 (Version 3)
Quarter: 2022Q2

REPORT INFORMATION
  Report Type: Report from Study
  Country: IL (occurrence: IL)
  Receive Date: 20220414
  Receipt Date: 20220419
  Transmission Date: 20220721
  Serious: Yes (Death, Hospitalization)
  Sender: FDA-Public Use
  Company Number: IL-ABBVIE-21K-082-4145574-00

PATIENT
  Age: 75 Year
  Sex: Female
  Weight: 63 kg

DRUGS (22)
  1. VENETOCLAX [Suspect]
     Active Substance: VENETOCLAX
     Indication: Acute myeloid leukaemia
     Dosage: 100 MG
     Route: 048
     Dates: start: 20210729, end: 20210729
  2. VENETOCLAX [Suspect]
     Active Substance: VENETOCLAX
     Route: 048
     Dates: start: 20210730, end: 20210730
  3. VENETOCLAX [Suspect]
     Active Substance: VENETOCLAX
     Dosage: INTERRUPTION DUE TO AE
     Route: 048
     Dates: start: 20210801, end: 20210904
  4. VENETOCLAX [Suspect]
     Active Substance: VENETOCLAX
     Dosage: DOSE REDUCTION DUE TO AE
     Route: 048
     Dates: start: 20210904, end: 20210925
  5. VENETOCLAX [Suspect]
     Active Substance: VENETOCLAX
     Dosage: DOSE REDUCTION DUE TO AE
     Route: 048
     Dates: start: 20211010, end: 20211024
  6. VENETOCLAX [Suspect]
     Active Substance: VENETOCLAX
     Route: 048
     Dates: start: 20211121, end: 20211205
  7. VENETOCLAX [Suspect]
     Active Substance: VENETOCLAX
     Route: 048
     Dates: start: 20211225, end: 20220108
  8. AZACITIDINE [Suspect]
     Active Substance: AZACITIDINE
     Indication: Acute myeloid leukaemia
     Dosage: CYCLE 1 - 125 MG
     Route: 042
     Dates: start: 20210729, end: 20210805
  9. AZACITIDINE [Suspect]
     Active Substance: AZACITIDINE
     Dosage: CYCLE 2 - 125 MG
     Route: 042
     Dates: start: 20210829, end: 20210904
  10. AZACITIDINE [Suspect]
     Active Substance: AZACITIDINE
     Dosage: CYCLE 3 - 110 MG
     Route: 042
     Dates: start: 20211010, end: 20211014
  11. AZACITIDINE [Suspect]
     Active Substance: AZACITIDINE
     Dosage: CYCLE 4
     Route: 042
     Dates: start: 20211121, end: 20211125
  12. AZACITIDINE [Suspect]
     Active Substance: AZACITIDINE
     Dosage: CYCLE 5
     Route: 042
     Dates: start: 20211226, end: 20211230
  13. PFIZER-BIONTECH COVID-19 VACCINE [Concomitant]
     Active Substance: TOZINAMERAN
     Indication: COVID-19 prophylaxis
     Dates: start: 20210105, end: 20210105
  14. PFIZER-BIONTECH COVID-19 VACCINE [Concomitant]
     Active Substance: TOZINAMERAN
     Dates: start: 20210127, end: 20210127
  15. PFIZER-BIONTECH COVID-19 VACCINE [Concomitant]
     Active Substance: TOZINAMERAN
     Dates: start: 20211020, end: 20211020
  16. ASPIRIN [Concomitant]
     Active Substance: ASPIRIN
     Indication: Myocardial ischaemia
     Dates: start: 2015
  17. ATORVASTATIN [Concomitant]
     Active Substance: ATORVASTATIN
     Indication: Hypercholesterolaemia
     Dates: start: 2007
  18. BISOPROLOL FUMARATE [Concomitant]
     Active Substance: BISOPROLOL FUMARATE
     Indication: Myocardial ischaemia
     Dates: start: 2015
  19. OMEPRAZOLE [Concomitant]
     Active Substance: OMEPRAZOLE
     Indication: Product used for unknown indication
     Dates: start: 200311
  20. VALSARTAN [Concomitant]
     Active Substance: VALSARTAN
     Indication: Hypertension
     Dates: start: 2017
  21. ZOPICLONE [Concomitant]
     Active Substance: ZOPICLONE
     Indication: Insomnia
     Dates: start: 2014
  22. ALLOPURINOL [Concomitant]
     Active Substance: ALLOPURINOL
     Indication: Prophylaxis
     Dates: start: 20210730, end: 20210805

REACTIONS (6)
  - Death [Fatal]
  - Pneumonia [Recovered/Resolved]
  - Hypersensitivity [Not Recovered/Not Resolved]
  - Drug hypersensitivity [Recovered/Resolved]
  - Pyrexia [Recovered/Resolved]
  - Neutropenia [Recovered/Resolved]

NARRATIVE: CASE EVENT DATE: 20210729
